FAERS Safety Report 23616299 (Version 1)
Quarter: 2024Q1

REPORT INFORMATION
  Report Type: Spontaneous
  Country: US (occurrence: None)
  Receive Date: 20240308
  Receipt Date: 20240308
  Transmission Date: 20240409
  Serious: Yes (Other)
  Sender: FDA-Public Use
  Company Number: None

PATIENT
  Age: 47 Year
  Sex: Female
  Weight: 54.9 kg

DRUGS (1)
  1. VYEPTI [Suspect]
     Active Substance: EPTINEZUMAB-JJMR
     Indication: Migraine
     Dosage: OTHER FREQUENCY : ONCE EVERY 3 MONTH;?
     Route: 042
     Dates: start: 20240307

REACTIONS (5)
  - Nausea [None]
  - Asthenia [None]
  - Hot flush [None]
  - Hyperhidrosis [None]
  - Chills [None]

NARRATIVE: CASE EVENT DATE: 20240307
